FAERS Safety Report 8265452 (Version 2)
Quarter: 2012Q4

REPORT INFORMATION
  Report Type: 
  Country: US (occurrence: US)
  Receive Date: 20111128
  Receipt Date: 20120920
  Transmission Date: 20130627
  Serious: Yes (Hospitalization, Other)
  Sender: FDA-Public Use
  Company Number: US-US-EMD SERONO, INC.-7097597

PATIENT
  Sex: Female

DRUGS (24)
  1. REBIF [Suspect]
     Indication: MULTIPLE SCLEROSIS
     Route: 058
     Dates: start: 20090315
  2. VITAMIN D [Concomitant]
  3. ZANAFLEX [Concomitant]
     Indication: DYSTONIA
  4. VALIUM [Concomitant]
     Indication: DYSTONIA
  5. METHADONE [Concomitant]
     Indication: BREAKTHROUGH PAIN
     Dates: end: 2008
  6. METHADONE [Concomitant]
  7. FENTANYL PATCH [Concomitant]
     Indication: BREAKTHROUGH PAIN
  8. HYDROCODONE [Concomitant]
     Indication: BREAKTHROUGH PAIN
  9. LEXAPRO [Concomitant]
     Indication: DEPRESSION
  10. KLONOPIN [Concomitant]
     Indication: ANXIETY
  11. BUSPAR [Concomitant]
     Indication: ANXIETY
  12. TEMAZEPAM [Concomitant]
     Indication: SLEEP DISORDER
  13. REMERON [Concomitant]
     Indication: SLEEP DISORDER
  14. VYVANSE [Concomitant]
     Indication: ATTENTION DEFICIT/HYPERACTIVITY DISORDER
  15. REGLAN [Concomitant]
     Indication: NAUSEA
  16. ZANAFLEX [Concomitant]
     Indication: MUSCLE SPASMS
  17. NEXIUM [Concomitant]
     Indication: GASTRITIS
  18. BYSTOLIC [Concomitant]
     Indication: HYPERTENSION
  19. OXYCODONE [Concomitant]
     Indication: PAIN
  20. SOMA [Concomitant]
     Indication: PAIN
  21. STOOL SOFTENER [Concomitant]
     Indication: CONSTIPATION
  22. MIRALAX [Concomitant]
     Indication: CONSTIPATION
  23. BENADRYL [Concomitant]
     Indication: HYPERSENSITIVITY
  24. SUDAFED [Concomitant]
     Indication: HYPERSENSITIVITY

REACTIONS (9)
  - Neurological symptom [Recovered/Resolved]
  - Tenosynovitis [Unknown]
  - Wrist fracture [Unknown]
  - Nausea [Not Recovered/Not Resolved]
  - Antibody test positive [Not Recovered/Not Resolved]
  - Fall [Unknown]
  - Visual field defect [Not Recovered/Not Resolved]
  - Vision blurred [Not Recovered/Not Resolved]
  - Rash [Not Recovered/Not Resolved]
